FAERS Safety Report 7226314-8 (Version None)
Quarter: 2011Q1

REPORT INFORMATION
  Report Type: 
  Country: None (occurrence: None)
  Receive Date: 20110114
  Receipt Date: 20110107
  Transmission Date: 20110831
  Serious: Yes (Death, Hospitalization)
  Sender: FDA-Public Use
  Company Number: PHHY2010US87607

PATIENT
  Sex: Male

DRUGS (1)
  1. EXJADE [Suspect]
     Dosage: 2000 MG, QD
     Route: 048
     Dates: start: 20090701, end: 20101101

REACTIONS (5)
  - SQUAMOUS CELL CARCINOMA [None]
  - BODY TEMPERATURE INCREASED [None]
  - TROPONIN I INCREASED [None]
  - MYELODYSPLASTIC SYNDROME [None]
  - DYSPNOEA [None]
